FAERS Safety Report 9474927 (Version 1)
Quarter: 2013Q3

REPORT INFORMATION
  Report Type: Report from Study
  Country: VE (occurrence: VE)
  Receive Date: 20130823
  Receipt Date: 20130823
  Transmission Date: 20140515
  Serious: Yes (Other)
  Sender: FDA-Public Use
  Company Number: VE-ROCHE-1265537

PATIENT
  Age: 45 Year
  Sex: Female
  Weight: 88 kg

DRUGS (2)
  1. AVASTIN [Suspect]
     Indication: NON-SMALL CELL LUNG CANCER
     Route: 042
     Dates: start: 20130618
  2. IBANDRONIC ACID [Concomitant]
     Indication: NON-SMALL CELL LUNG CANCER
     Route: 065
     Dates: start: 20130618

REACTIONS (1)
  - Haemoptysis [Not Recovered/Not Resolved]
